FAERS Safety Report 6994048-0 (Version None)
Quarter: 2010Q3

REPORT INFORMATION
  Report Type: 
  Country: None (occurrence: None)
  Receive Date: 20100917
  Receipt Date: 20100816
  Transmission Date: 20110219
  Serious: No
  Sender: FDA-Public Use
  Company Number: US-BAYER-201020052BCC

PATIENT
  Age: 74 Year
  Sex: Male
  Weight: 127 kg

DRUGS (2)
  1. ALEVE [Suspect]
     Indication: BACK PAIN
     Dosage: TOTAL DAILY DOSE: 660 MG  UNIT DOSE: 220 MG
     Route: 048
     Dates: start: 20100801
  2. LORTAB [Concomitant]

REACTIONS (1)
  - URINE COLOUR ABNORMAL [None]
